FAERS Safety Report 13144639 (Version 6)
Quarter: 2018Q2

REPORT INFORMATION
  Report Type: Spontaneous
  Country: IL (occurrence: IL)
  Receive Date: 20170124
  Receipt Date: 20180507
  Transmission Date: 20180711
  Serious: Yes (Hospitalization, Other)
  Sender: FDA-Public Use
  Company Number: IL-ALEXION PHARMACEUTICALS INC.-A201700351

PATIENT
  Age: 3 Month
  Sex: Female

DRUGS (4)
  1. KANUMA [Suspect]
     Active Substance: SEBELIPASE ALFA
     Dosage: 5 MG/KG, QW
     Route: 042
     Dates: start: 20170115
  2. KANUMA [Suspect]
     Active Substance: SEBELIPASE ALFA
     Indication: LYSOSOMAL ACID LIPASE DEFICIENCY
     Dosage: 3 MG/KG, QW
     Route: 042
     Dates: start: 20170109, end: 20170109
  3. KANUMA [Suspect]
     Active Substance: SEBELIPASE ALFA
     Dosage: 3 MG/KG, QW
     Route: 042
     Dates: start: 20170205
  4. KANUMA [Suspect]
     Active Substance: SEBELIPASE ALFA
     Dosage: 3.6 MG/KG, QW
     Route: 042
     Dates: start: 20180311

REACTIONS (21)
  - Blood bilirubin increased [Recovered/Resolved]
  - Renal failure [Recovered/Resolved]
  - Inflammation [Recovered/Resolved]
  - Overdose [Not Recovered/Not Resolved]
  - Viral infection [Recovered/Resolved]
  - Haemoglobin decreased [Recovered/Resolved]
  - Pyrexia [Recovered/Resolved]
  - Blood triglycerides increased [Recovered/Resolved]
  - Infectious mononucleosis [Not Recovered/Not Resolved]
  - Fatigue [Not Recovered/Not Resolved]
  - Hypoglycaemia [Recovered/Resolved]
  - Blood sodium increased [Recovered/Resolved]
  - Ascites [Not Recovered/Not Resolved]
  - Dyspnoea [Recovered/Resolved]
  - Blood lactate dehydrogenase increased [Recovered/Resolved]
  - Platelet count decreased [Recovered/Resolved]
  - Dehydration [Recovered/Resolved]
  - Cytomegalovirus test positive [Unknown]
  - Weight decreased [Recovered/Resolved]
  - Viral diarrhoea [Recovered/Resolved]
  - Drug ineffective [Recovered/Resolved]

NARRATIVE: CASE EVENT DATE: 20170115
